FAERS Safety Report 13736159 (Version 3)
Quarter: 2017Q3

REPORT INFORMATION
  Report Type: Spontaneous
  Country: US (occurrence: US)
  Receive Date: 20170710
  Receipt Date: 20170829
  Transmission Date: 20171127
  Serious: Yes (Hospitalization, Other)
  Sender: FDA-Public Use
  Company Number: US-UNITED THERAPEUTICS-UNT-2017-010072

PATIENT
  Age: 56 Year
  Sex: Female
  Weight: 79.37 kg

DRUGS (2)
  1. REMODULIN [Suspect]
     Active Substance: TREPROSTINIL
     Indication: PULMONARY HYPERTENSION
     Dosage: 0.049 ?G/KG, CONTINUING
     Route: 058
     Dates: start: 20160225
  2. LETAIRIS [Concomitant]
     Active Substance: AMBRISENTAN
     Indication: PRODUCT USED FOR UNKNOWN INDICATION

REACTIONS (3)
  - Post procedural infection [Unknown]
  - Abscess [Unknown]
  - Breast conserving surgery [Unknown]

NARRATIVE: CASE EVENT DATE: 20170630
